FAERS Safety Report 9884097 (Version 1)
Quarter: 2014Q1

REPORT INFORMATION
  Report Type: Spontaneous
  Country: US (occurrence: US)
  Receive Date: 20140210
  Receipt Date: 20140210
  Transmission Date: 20141002
  Serious: No
  Sender: FDA-Public Use
  Company Number: US-ALLERGAN-1316692US

PATIENT
  Age: 36 Year
  Sex: Male

DRUGS (1)
  1. BOTOX [Suspect]
     Indication: HYPERHIDROSIS
     Dosage: UNK
     Route: 030
     Dates: start: 20131022, end: 20131022

REACTIONS (3)
  - Sensory disturbance [Unknown]
  - Incorrect route of drug administration [Unknown]
  - Muscular weakness [Unknown]
